FAERS Safety Report 5073739-5 (Version None)
Quarter: 2006Q3

REPORT INFORMATION
  Report Type: 
  Country: None (occurrence: None)
  Receive Date: 20060808
  Receipt Date: 20050416
  Transmission Date: 20061208
  Serious: No
  Sender: FDA-Public Use
  Company Number: US-AMGEN-KDL128023

PATIENT
  Age: 60 Year
  Sex: Male

DRUGS (3)
  1. PROCRIT [Suspect]
     Indication: RENAL FAILURE CHRONIC
  2. CARDIAC MEDICATION NOS [Concomitant]
  3. ASPIRIN [Concomitant]

REACTIONS (1)
  - THERAPEUTIC RESPONSE DELAYED [None]
